FAERS Safety Report 24221879 (Version 1)
Quarter: 2024Q3

REPORT INFORMATION
  Report Type: Spontaneous
  Country: IT (occurrence: IT)
  Receive Date: 20240819
  Receipt Date: 20240819
  Transmission Date: 20241017
  Serious: Yes (Other)
  Sender: SANDOZ
  Company Number: IT-EMA-DD-20190301-kumarsingh_a-141913

PATIENT
  Age: 41 Year
  Sex: Male

DRUGS (12)
  1. BASILIXIMAB [Suspect]
     Active Substance: BASILIXIMAB
     Indication: Prophylaxis against transplant rejection
     Dosage: 20.000MG
     Route: 042
  2. MYCOPHENOLATE MOFETIL [Suspect]
     Active Substance: MYCOPHENOLATE MOFETIL
     Indication: Prophylaxis against transplant rejection
     Dosage: 2000 MG, QD
     Route: 048
  3. PREDNISONE [Suspect]
     Active Substance: PREDNISONE
     Indication: Prophylaxis against transplant rejection
     Dosage: 25.000MG QD
     Route: 048
  4. RITUXIMAB [Suspect]
     Active Substance: RITUXIMAB
     Indication: Prophylaxis against transplant rejection
     Dosage: 375 MG/M2, UNK
     Route: 042
  5. TACROLIMUS [Suspect]
     Active Substance: TACROLIMUS
     Indication: Prophylaxis against transplant rejection
     Dosage: 0.15 MG/KG, ONCE DAILY
     Route: 048
  6. CHLORPHENIRAMINE MALEATE [Concomitant]
     Active Substance: CHLORPHENIRAMINE MALEATE
     Indication: Premedication
     Dosage: 10 MG, UNK
     Route: 042
  7. METHYLPREDNISOLONE [Concomitant]
     Active Substance: METHYLPREDNISOLONE
     Indication: Premedication
     Dosage: 250 MG, UNK
     Route: 042
  8. OFATUMUMAB [Concomitant]
     Active Substance: OFATUMUMAB
     Dosage: 2000 MG, 28 DAYS BEFORE THE TRANSPLANT
     Route: 042
  9. OFATUMUMAB [Concomitant]
     Active Substance: OFATUMUMAB
     Indication: Prophylaxis against transplant rejection
     Dosage: 35 DAYS BEFORE THE TRANSPLANT
     Route: 042
  10. ACETAMINOPHEN [Concomitant]
     Active Substance: ACETAMINOPHEN
     Indication: Premedication
     Dosage: 1 G, UNK
     Route: 042
  11. SULFAMETHOXAZOLE\TRIMETHOPRIM [Concomitant]
     Active Substance: SULFAMETHOXAZOLE\TRIMETHOPRIM
     Indication: Pneumocystis jirovecii pneumonia
     Dosage: UNK UNK, UNKNOWN FREQ.
     Route: 065
  12. SULFAMETHOXAZOLE\TRIMETHOPRIM [Concomitant]
     Active Substance: SULFAMETHOXAZOLE\TRIMETHOPRIM
     Dosage: UNK UNK, UNKNOWN FREQ.
     Route: 065

REACTIONS (7)
  - Tremor [Unknown]
  - Infusion related reaction [Unknown]
  - Cytomegalovirus infection reactivation [Unknown]
  - Malaise [Unknown]
  - Pyrexia [Unknown]
  - Dyspnoea [Unknown]
  - Product use in unapproved indication [Unknown]
